FAERS Safety Report 6349519-7 (Version None)
Quarter: 2009Q3

REPORT INFORMATION
  Report Type: 
  Country: None (occurrence: None)
  Receive Date: 20090911
  Receipt Date: 20090902
  Transmission Date: 20100115
  Serious: Yes (Death)
  Sender: FDA-Public Use
  Company Number: JP-PFIZER INC-2009261625

PATIENT
  Age: 65 Year

DRUGS (1)
  1. MYCOBUTIN [Suspect]
     Indication: MYCOBACTERIUM AVIUM COMPLEX INFECTION
     Dosage: 1 DF, SINGLE
     Route: 048
     Dates: start: 20090801

REACTIONS (1)
  - MYCOBACTERIUM AVIUM COMPLEX INFECTION [None]
